FAERS Safety Report 20999560 (Version 1)
Quarter: 2022Q2

REPORT INFORMATION
  Report Type: Spontaneous
  Country: US (occurrence: US)
  Receive Date: 20220623
  Receipt Date: 20220623
  Transmission Date: 20220721
  Serious: No
  Sender: FDA-Public Use
  Company Number: US-PFIZER INC-202200867198

PATIENT
  Age: 67 Year
  Sex: Male
  Weight: 95.25 kg

DRUGS (5)
  1. AMLODIPINE BESYLATE [Interacting]
     Active Substance: AMLODIPINE BESYLATE
     Indication: Blood pressure measurement
     Dosage: 5 MG, 1X/DAY (ONCE A DAY IN THE EVENING)
  2. HYDROCHLOROTHIAZIDE\OLMESARTAN MEDOXOMIL [Interacting]
     Active Substance: HYDROCHLOROTHIAZIDE\OLMESARTAN MEDOXOMIL
     Indication: Blood pressure measurement
     Dosage: UNK, 1X/DAY (40-12.5 TABLETS, TAKES ONCE A DAY)
  3. CARVEDILOL [Interacting]
     Active Substance: CARVEDILOL
     Indication: Blood pressure measurement
     Dosage: 6.25 MG, 2X/DAY
  4. VITAMIN D NOS [Concomitant]
     Active Substance: VITAMIN D NOS
     Dosage: UNK
  5. FISH OIL [Concomitant]
     Active Substance: FISH OIL
     Dosage: UNK

REACTIONS (2)
  - Potentiating drug interaction [Unknown]
  - Drug ineffective [Unknown]

NARRATIVE: CASE EVENT DATE: 20220620
